FAERS Safety Report 5495406-6 (Version None)
Quarter: 2007Q4

REPORT INFORMATION
  Report Type: 
  Country: None (occurrence: None)
  Receive Date: 20071023
  Receipt Date: 20071010
  Transmission Date: 20080405
  Serious: Yes (Other)
  Sender: FDA-Public Use
  Company Number: 2007332994

PATIENT
  Age: 2 Year
  Sex: Female
  Weight: 16.7831 kg

DRUGS (1)
  1. LISTERINE AGENT COOL BLUE BUBBLE BLAST(NO ACTIVE INGREDIENT) [Suspect]
     Indication: DENTAL DISORDER PROPHYLAXIS
     Dosage: 10 MM TWICE DAILY (2 IN 1 D), ORAL
     Route: 048
     Dates: start: 20070715, end: 20071010

REACTIONS (5)
  - COUGH [None]
  - DYSURIA [None]
  - PHARYNGEAL OEDEMA [None]
  - PYREXIA [None]
  - VOMITING [None]
